FAERS Safety Report 9511860 (Version 2)
Quarter: 2014Q1

REPORT INFORMATION
  Report Type: Spontaneous
  Country: US (occurrence: None)
  Receive Date: 20130305
  Receipt Date: 20140306
  Transmission Date: 20141002
  Serious: Yes (Hospitalization)
  Sender: FDA-Public Use
  Company Number: 163-21880-12103572

PATIENT
  Age: 75 Year
  Sex: Male

DRUGS (12)
  1. REVLIMID (LENALIDOMIDE) (25 MILLIGRAM, CAPSULES) [Suspect]
     Indication: PLASMA CELL MYELOMA
     Dosage: 25 MG,M 14 IN 21 D, PO
     Route: 048
     Dates: start: 201207
  2. VELCADE (BORTEZOMIB) [Concomitant]
  3. DEXAMETHASONE [Concomitant]
  4. SENNA [Concomitant]
  5. OXYCODONE [Concomitant]
  6. VALIUM (DIAZEPAM) [Concomitant]
  7. OXYCONTIN (OXYCODONE HYDROCHLORIDE) [Concomitant]
  8. TYLENOL (PARACETAMOL) [Concomitant]
  9. ASA (ACETYLSALICYLIC ACID) [Concomitant]
  10. LASIX (FUROSEMIDE) [Concomitant]
  11. KLOR CON (POTASSIUM CHLORIDE) [Concomitant]
  12. ZOMETA (ZOLEDRONIC ACID) [Concomitant]

REACTIONS (2)
  - Postoperative wound infection [None]
  - Abscess [None]
